FAERS Safety Report 16644801 (Version 1)
Quarter: 2019Q3

REPORT INFORMATION
  Report Type: Spontaneous
  Country: US (occurrence: US)
  Receive Date: 20190729
  Receipt Date: 20190729
  Transmission Date: 20191004
  Serious: No
  Sender: FDA-Public Use
  Company Number: US-PRINSTON PHARMACEUTICAL INC.-2019PRN00453

PATIENT
  Sex: Female
  Weight: 57.14 kg

DRUGS (9)
  1. ROPINIROLE HYDROCHLORIDE. [Suspect]
     Active Substance: ROPINIROLE HYDROCHLORIDE
     Dosage: TO MAKE 0.75 MG 3X/DAY
     Route: 048
  2. UNSPECIFIED VITAMINS [Concomitant]
     Active Substance: VITAMINS
  3. ROPINIROLE HYDROCHLORIDE. [Suspect]
     Active Substance: ROPINIROLE HYDROCHLORIDE
     Indication: PARKINSON^S DISEASE
     Dosage: 0.25 MG, 3X/DAY
     Route: 048
     Dates: start: 201808, end: 2018
  4. ROPINIROLE HYDROCHLORIDE. [Suspect]
     Active Substance: ROPINIROLE HYDROCHLORIDE
     Indication: PARKINSON^S DISEASE
     Dosage: 1 MG, 3X/DAY
     Route: 048
     Dates: start: 2018, end: 2018
  5. ROPINIROLE HYDROCHLORIDE. [Suspect]
     Active Substance: ROPINIROLE HYDROCHLORIDE
     Indication: PARKINSON^S DISEASE
     Dosage: 2 MG, 3X/DAY
     Route: 048
     Dates: start: 2018, end: 2018
  6. ROPINIROLE HYDROCHLORIDE. [Suspect]
     Active Substance: ROPINIROLE HYDROCHLORIDE
     Dosage: TO MAKE 0.75 MG 3X/DAY
     Route: 048
     Dates: start: 2018, end: 2018
  7. CALCIUM [Concomitant]
     Active Substance: CALCIUM
  8. ROPINIROLE HYDROCHLORIDE. [Suspect]
     Active Substance: ROPINIROLE HYDROCHLORIDE
     Indication: PARKINSON^S DISEASE
     Dosage: 3 MG, 3X/DAY
     Route: 048
     Dates: start: 2018, end: 2019
  9. ROPINIROLE HYDROCHLORIDE. [Suspect]
     Active Substance: ROPINIROLE HYDROCHLORIDE
     Indication: PARKINSON^S DISEASE
     Dosage: 0.5 MG, 3X/DAY
     Route: 048
     Dates: start: 2018, end: 2018

REACTIONS (4)
  - Dizziness [Recovered/Resolved]
  - Malaise [Recovered/Resolved]
  - Therapeutic product effect incomplete [Recovered/Resolved]
  - Tremor [Recovered/Resolved]
